FAERS Safety Report 9035050 (Version 1)
Quarter: 2013Q1

REPORT INFORMATION
  Report Type: Report from Study
  Country: US (occurrence: US)
  Receive Date: 20130129
  Receipt Date: 20130129
  Transmission Date: 20140127
  Serious: No
  Sender: FDA-Public Use
  Company Number: US-ABBOTT-12P-163-0890922-00

PATIENT
  Sex: Male
  Weight: 82.63 kg

DRUGS (9)
  1. HUMIRA 40 MG/0.8 ML PEN [Suspect]
     Indication: RHEUMATOID ARTHRITIS
     Route: 058
     Dates: start: 200804, end: 20111009
  2. HUMIRA 40 MG/0.8 ML PEN [Suspect]
     Route: 058
     Dates: start: 20120108
  3. PREDNISONE [Concomitant]
     Indication: RHEUMATOID ARTHRITIS
     Dates: end: 2010
  4. OMEPRAZOLE [Concomitant]
     Indication: REFLUX GASTRITIS
  5. SIMVASTATIN [Concomitant]
     Indication: BLOOD CHOLESTEROL INCREASED
  6. IBUPROFEN [Concomitant]
     Indication: RHEUMATOID ARTHRITIS
  7. TYLENOL [Concomitant]
     Indication: RHEUMATOID ARTHRITIS
  8. TRAZADONE [Concomitant]
     Indication: SLEEP DISORDER THERAPY
     Dosage: 1/2 TAB QHS
  9. ENBREL [Concomitant]
     Indication: RHEUMATOID ARTHRITIS
     Dates: start: 20111017, end: 20111218

REACTIONS (4)
  - Arthralgia [Not Recovered/Not Resolved]
  - Drug effect decreased [Not Recovered/Not Resolved]
  - Pain in extremity [Not Recovered/Not Resolved]
  - Nail discolouration [Not Recovered/Not Resolved]
